FAERS Safety Report 9937027 (Version 1)
Quarter: 2014Q1

REPORT INFORMATION
  Report Type: Spontaneous
  Country: CA (occurrence: None)
  Receive Date: 20140116
  Receipt Date: 20140116
  Transmission Date: 20141002
  Serious: Yes (Other)
  Sender: FDA-Public Use
  Company Number: 2013-01752

PATIENT
  Age: 26 Year
  Sex: Male

DRUGS (1)
  1. DOXYCYCLINE [Suspect]
     Indication: ACNE

REACTIONS (3)
  - Vascular injury [None]
  - Oesophageal ulcer [None]
  - Oesophagitis [None]
